FAERS Safety Report 9008521 (Version 1)
Quarter: 2013Q1

REPORT INFORMATION
  Report Type: Spontaneous
  Country: GB (occurrence: GB)
  Receive Date: 20130111
  Receipt Date: 20130111
  Transmission Date: 20140127
  Serious: Yes (Other)
  Sender: FDA-Public Use
  Company Number: GB-BAYER-2013-000906

PATIENT
  Age: 33 Year
  Sex: Female

DRUGS (2)
  1. ACETYLSALICYLIC ACID [Suspect]
     Indication: ANTIPHOSPHOLIPID SYNDROME
     Dosage: UNK UNK, QD
  2. HEPARIN [Concomitant]
     Indication: ANTIPHOSPHOLIPID SYNDROME

REACTIONS (4)
  - Premature labour [None]
  - Antiphospholipid syndrome [None]
  - Exposure during pregnancy [None]
  - Off label use [None]
